FAERS Safety Report 13332679 (Version 1)
Quarter: 2017Q1

REPORT INFORMATION
  Report Type: Spontaneous
  Country: US (occurrence: US)
  Receive Date: 20170314
  Receipt Date: 20170314
  Transmission Date: 20170428
  Serious: Yes (Hospitalization)
  Sender: FDA-Public Use
  Company Number: None

PATIENT
  Age: 69 Year
  Sex: Male
  Weight: 70.8 kg

DRUGS (3)
  1. ASPIRIN. [Suspect]
     Active Substance: ASPIRIN
     Indication: CORONARY ARTERIAL STENT INSERTION
     Route: 048
     Dates: start: 20161020, end: 20161222
  2. CLOPIDOGREL [Suspect]
     Active Substance: CLOPIDOGREL BISULFATE
     Indication: CORONARY ARTERIAL STENT INSERTION
     Route: 048
     Dates: start: 20151102, end: 20161222
  3. ASPIRIN. [Suspect]
     Active Substance: ASPIRIN
     Indication: CORONARY ARTERY DISEASE
     Route: 048
     Dates: start: 20161020, end: 20161222

REACTIONS (8)
  - Dyspnoea [None]
  - Gastrointestinal haemorrhage [None]
  - Gastric haemorrhage [None]
  - Asthenia [None]
  - Fatigue [None]
  - Gastrointestinal ulcer [None]
  - Haemoglobin decreased [None]
  - Dizziness [None]

NARRATIVE: CASE EVENT DATE: 20161222
